FAERS Safety Report 23267516 (Version 2)
Quarter: 2023Q4

REPORT INFORMATION
  Report Type: Spontaneous
  Country: US (occurrence: US)
  Receive Date: 20231206
  Receipt Date: 20231215
  Transmission Date: 20240109
  Serious: No
  Sender: FDA-Public Use
  Company Number: US-GSK-US2023169542

PATIENT
  Sex: Male

DRUGS (2)
  1. FLOVENT HFA [Suspect]
     Active Substance: FLUTICASONE PROPIONATE
     Indication: Emphysema
     Dosage: 220 UG, BID
     Dates: start: 202209, end: 202311
  2. FLOVENT HFA [Suspect]
     Active Substance: FLUTICASONE PROPIONATE
     Indication: Chronic obstructive pulmonary disease

REACTIONS (11)
  - Eye disorder [Not Recovered/Not Resolved]
  - Erythema [Not Recovered/Not Resolved]
  - Dysarthria [Unknown]
  - Photophobia [Unknown]
  - Sunburn [Unknown]
  - Teeth brittle [Unknown]
  - Gait disturbance [Unknown]
  - Asthenia [Unknown]
  - Dizziness [Unknown]
  - Product use in unapproved indication [Unknown]
  - Inappropriate schedule of product administration [Unknown]
